FAERS Safety Report 8287552-9 (Version None)
Quarter: 2012Q2

REPORT INFORMATION
  Report Type: 
  Country: None (occurrence: None)
  Receive Date: 20120411
  Receipt Date: 20120411
  Transmission Date: 20120825
  Serious: Yes (Hospitalization)
  Sender: FDA-Public Use
  Company Number: None

PATIENT
  Age: 73 Year
  Sex: Female
  Weight: 44.9061 kg

DRUGS (2)
  1. GEMCITABINE [Suspect]
     Indication: PANCREATIC CARCINOMA
     Dosage: 1470 MG
     Dates: start: 20120329
  2. ERLOTINIB HYDROCHLORIDE [Suspect]
     Dosage: 150 MG DAILY

REACTIONS (3)
  - PNEUMONITIS [None]
  - DYSPNOEA [None]
  - COUGH [None]
